FAERS Safety Report 9239723 (Version 1)
Quarter: 2013Q2

REPORT INFORMATION
  Report Type: Spontaneous
  Country: CA (occurrence: CA)
  Receive Date: 20130418
  Receipt Date: 20130418
  Transmission Date: 20140414
  Serious: Yes (Hospitalization)
  Sender: FDA-Public Use
  Company Number: CA-TEVA-398719USA

PATIENT
  Age: 68 Year
  Sex: Female
  Weight: 63 kg

DRUGS (14)
  1. AMIODARONE [Suspect]
     Dosage: 200 MILLIGRAM DAILY;
     Route: 048
  2. ADVAIR 500 DISKUS [Concomitant]
  3. BISOPROLOL [Concomitant]
  4. CITALOPRAM [Concomitant]
  5. COENZYME Q10 [Concomitant]
  6. CRESTOR [Concomitant]
  7. CYMBALTA [Concomitant]
  8. EZETROL [Concomitant]
  9. FOLIC ACID [Concomitant]
  10. MONTELUKAST [Concomitant]
  11. NOVO-MEXILETINE [Concomitant]
  12. PYRIDOXINE [Concomitant]
  13. RAMIPRIL [Concomitant]
  14. SPIRIVA [Concomitant]

REACTIONS (7)
  - Activities of daily living impaired [Recovered/Resolved]
  - Exercise tolerance decreased [Recovered/Resolved]
  - Cough [Recovered/Resolved]
  - Dyspnoea [Recovered/Resolved]
  - Malaise [Recovered/Resolved]
  - Musculoskeletal chest pain [Recovered/Resolved]
  - Oxygen saturation decreased [Recovered/Resolved]
